FAERS Safety Report 12397302 (Version 1)
Quarter: 2016Q2

REPORT INFORMATION
  Report Type: Spontaneous
  Country: US (occurrence: None)
  Receive Date: 20160523
  Receipt Date: 20160523
  Transmission Date: 20160815
  Serious: No
  Sender: FDA-Public Use
  Company Number: None

PATIENT
  Age: 61 Year
  Sex: Male

DRUGS (1)
  1. OPANA ER [Suspect]
     Active Substance: OXYMORPHONE HYDROCHLORIDE
     Indication: RHEUMATOID ARTHRITIS

REACTIONS (4)
  - Feeling abnormal [None]
  - Drug dispensing error [None]
  - Intercepted drug administration error [None]
  - Myocardial infarction [None]

NARRATIVE: CASE EVENT DATE: 20160520
